FAERS Safety Report 4618672-5 (Version None)
Quarter: 2005Q2

REPORT INFORMATION
  Report Type: 
  Country: None (occurrence: None)
  Receive Date: 20050311
  Receipt Date: 20041102
  Transmission Date: 20051028
  Serious: No
  Sender: FDA-Public Use
  Company Number: 2004-BP-09766BP

PATIENT
  Age: 77 Year
  Sex: Female
  Weight: 75.3 kg

DRUGS (11)
  1. SPIRIVA [Suspect]
     Indication: CHRONIC OBSTRUCTIVE PULMONARY DISEASE
     Dosage: 18 MCG (18 MCG), IH
     Route: 055
     Dates: start: 20040514
  2. TOPROL-XL [Concomitant]
  3. PRAVACHOL [Concomitant]
  4. PLAVIX [Concomitant]
  5. DIOVAN [Concomitant]
  6. LEVOTHROID [Concomitant]
  7. ACTOS [Concomitant]
  8. GLUCOPHAGE [Concomitant]
  9. ISOSORBIDE MONOITRATE (ISOSORBIDE MONONITRATE) [Concomitant]
  10. ASPIRIN [Concomitant]
  11. OXYGEN (OXYGEN) [Concomitant]

REACTIONS (4)
  - DRY MOUTH [None]
  - NASAL DISCOMFORT [None]
  - PAIN [None]
  - PARAESTHESIA [None]
